FAERS Safety Report 8965352 (Version 1)
Quarter: 2012Q4

REPORT INFORMATION
  Report Type: 
  Country: US (occurrence: US)
  Receive Date: 20121213
  Receipt Date: 20121213
  Transmission Date: 20130627
  Serious: Yes (Other)
  Sender: FDA-Public Use
  Company Number: US-BRISTOL-MYERS SQUIBB COMPANY-17169293

PATIENT
  Age: 74 Year
  Sex: Female

DRUGS (2)
  1. IPILIMUMAB [Suspect]
     Indication: METASTATIC MALIGNANT MELANOMA
     Dates: start: 20100916
  2. TEMOZOLOMIDE [Suspect]
     Indication: MALIGNANT MELANOMA

REACTIONS (2)
  - Large granular lymphocytosis [Unknown]
  - Neutropenia [Unknown]
